FAERS Safety Report 7911360-9 (Version None)
Quarter: 2011Q4

REPORT INFORMATION
  Report Type: 
  Country: None (occurrence: None)
  Receive Date: 20111109
  Receipt Date: 20110819
  Transmission Date: 20120403
  Serious: Yes (Hospitalization, Other)
  Sender: FDA-Public Use
  Company Number: AUR-APL-2011-04477

PATIENT
  Age: 65 Year
  Sex: Female

DRUGS (1)
  1. DIVALPROEX SODIUM [Suspect]
     Indication: CONVULSION
     Dosage: (1 GM, 1 D), UNKNOWN

REACTIONS (12)
  - ACTIVITIES OF DAILY LIVING IMPAIRED [None]
  - DEMENTIA [None]
  - GAIT DISTURBANCE [None]
  - CONFUSIONAL STATE [None]
  - NUCLEAR MAGNETIC RESONANCE IMAGING BRAIN ABNORMAL [None]
  - HYPOMETABOLISM [None]
  - ALTERED VISUAL DEPTH PERCEPTION [None]
  - HEADACHE [None]
  - COGNITIVE DISORDER [None]
  - URINARY INCONTINENCE [None]
  - CEREBRAL ATROPHY [None]
  - POSITRON EMISSION TOMOGRAM ABNORMAL [None]
